FAERS Safety Report 4760187-8 (Version None)
Quarter: 2005Q3

REPORT INFORMATION
  Report Type: 
  Country: None (occurrence: None)
  Receive Date: 20050831
  Receipt Date: 20050831
  Transmission Date: 20060218
  Serious: No
  Sender: FDA-Public Use
  Company Number: None

PATIENT
  Age: 69 Year
  Sex: Female
  Weight: 85.2762 kg

DRUGS (9)
  1. AVASTIN [Suspect]
     Indication: COLON CANCER METASTATIC
     Dosage: 400MG QOWEEK IV DRIP
     Route: 042
     Dates: start: 20050525, end: 20050825
  2. AVASTIN [Suspect]
     Indication: COLON CANCER METASTATIC
     Dosage: 43MG QOWEEK IV DRIP
     Route: 042
     Dates: start: 20050525, end: 20050825
  3. ELOXATIN [Concomitant]
  4. LEUCOVORIN [Concomitant]
  5. FLUOROURACIL [Concomitant]
  6. ALOXI [Concomitant]
  7. DECADRON [Concomitant]
  8. CALCIUM GLUCONATE [Concomitant]
  9. MAGNESIUM CITRATE [Concomitant]

REACTIONS (6)
  - HYPERHIDROSIS [None]
  - HYPERTENSION [None]
  - NAUSEA [None]
  - NECK PAIN [None]
  - PAIN IN EXTREMITY [None]
  - VOMITING [None]
